FAERS Safety Report 23972687 (Version 2)
Quarter: 2024Q2

REPORT INFORMATION
  Report Type: Spontaneous
  Country: JP (occurrence: JP)
  Receive Date: 20240613
  Receipt Date: 20240621
  Transmission Date: 20240715
  Serious: Yes (Death, Hospitalization)
  Sender: FDA-Public Use
  Company Number: JP-AMRYT PHARMACEUTICALS DAC-AEGR007187

PATIENT

DRUGS (1)
  1. METRELEPTIN [Suspect]
     Active Substance: METRELEPTIN
     Indication: Congenital generalised lipodystrophy
     Dosage: 1.53 MILLIGRAM, QD
     Route: 058
     Dates: start: 201703

REACTIONS (2)
  - Cardiac disorder [Fatal]
  - Diabetic gangrene [Unknown]

NARRATIVE: CASE EVENT DATE: 20240501
